FAERS Safety Report 8112563-3 (Version None)
Quarter: 2012Q1

REPORT INFORMATION
  Report Type: 
  Country: None (occurrence: None)
  Receive Date: 20120203
  Receipt Date: 20120123
  Transmission Date: 20120608
  Serious: Yes (Hospitalization)
  Sender: FDA-Public Use
  Company Number: ES-UCBSA-050408

PATIENT
  Age: 26 Year
  Sex: Female
  Weight: 98.7 kg

DRUGS (1)
  1. CIMZIA [Suspect]
     Indication: RHEUMATOID ARTHRITIS
     Dosage: UNKNOWN DOSE
     Route: 058

REACTIONS (2)
  - TONSILLECTOMY [None]
  - POST PROCEDURAL HAEMORRHAGE [None]
